FAERS Safety Report 8483752-3 (Version None)
Quarter: 2012Q3

REPORT INFORMATION
  Report Type: 
  Country: None (occurrence: None)
  Receive Date: 20120703
  Receipt Date: 20120625
  Transmission Date: 20120928
  Serious: Yes (Hospitalization)
  Sender: FDA-Public Use
  Company Number: US-BIOGENIDEC-2012BI020353

PATIENT
  Sex: Male

DRUGS (2)
  1. MEDICATION (NOS) WITH TYLENOL [Concomitant]
  2. AVONEX [Suspect]
     Indication: MULTIPLE SCLEROSIS
     Route: 030
     Dates: start: 20080101, end: 20080101

REACTIONS (3)
  - DRUG HYPERSENSITIVITY [None]
  - RENAL FAILURE [None]
  - HEPATIC FAILURE [None]
